FAERS Safety Report 5465751-9 (Version None)
Quarter: 2007Q3

REPORT INFORMATION
  Report Type: 
  Country: None (occurrence: None)
  Receive Date: 20070924
  Receipt Date: 20070918
  Transmission Date: 20080115
  Serious: Yes (Hospitalization)
  Sender: FDA-Public Use
  Company Number: A0682705A

PATIENT
  Age: 56 Year
  Sex: Male

DRUGS (5)
  1. LAMICTAL [Suspect]
     Indication: BIPOLAR DISORDER
     Dosage: 200MG PER DAY
     Route: 048
     Dates: start: 20070601
  2. COUMADIN [Concomitant]
  3. LEXAPRO [Concomitant]
  4. LEVOTHROID [Concomitant]
  5. KLONOPIN [Concomitant]

REACTIONS (2)
  - CHILLS [None]
  - TEMPOROMANDIBULAR JOINT SYNDROME [None]
